FAERS Safety Report 9408366 (Version 1)
Quarter: 2013Q3

REPORT INFORMATION
  Report Type: Spontaneous
  Country: PR (occurrence: US)
  Receive Date: 20130718
  Receipt Date: 20130718
  Transmission Date: 20140515
  Serious: No
  Sender: FDA-Public Use
  Company Number: PR-009507513-1307USA008145

PATIENT
  Age: 27 Year
  Sex: Female
  Weight: 66.67 kg

DRUGS (1)
  1. NUVARING [Suspect]
     Indication: CONTRACEPTION
     Dosage: 1 RING FOR 3 WEEKS THEN REMOVED
     Route: 067
     Dates: start: 201106, end: 20130623

REACTIONS (3)
  - Weight increased [Not Recovered/Not Resolved]
  - Menorrhagia [Not Recovered/Not Resolved]
  - Inappropriate schedule of drug administration [Unknown]
